FAERS Safety Report 7655053-4 (Version None)
Quarter: 2011Q3

REPORT INFORMATION
  Report Type: 
  Country: None (occurrence: None)
  Receive Date: 20110728
  Receipt Date: 20110713
  Transmission Date: 20111222
  Serious: Yes (Hospitalization)
  Sender: FDA-Public Use
  Company Number: FUR-11-14

PATIENT
  Age: 43 Year
  Sex: Male

DRUGS (2)
  1. INSULIN [Concomitant]
  2. FUROSEMIDE [Suspect]
     Indication: OEDEMA
     Dosage: 750MG

REACTIONS (2)
  - WEIGHT DECREASED [None]
  - DIABETES MELLITUS INADEQUATE CONTROL [None]
